FAERS Safety Report 6765676-2 (Version None)
Quarter: 2010Q2

REPORT INFORMATION
  Report Type: 
  Country: None (occurrence: None)
  Receive Date: 20100611
  Receipt Date: 20100528
  Transmission Date: 20101027
  Serious: Yes (Hospitalization, Other)
  Sender: FDA-Public Use
  Company Number: US-ELI_LILLY_AND_COMPANY-US201006000803

PATIENT
  Sex: Female

DRUGS (11)
  1. FORTEO [Suspect]
     Indication: OSTEOPOROSIS
     Dosage: 20 UG, DAILY (1/D)
     Dates: start: 20090601
  2. COUMADIN [Concomitant]
  3. PATANOL [Concomitant]
  4. NASONEX [Concomitant]
  5. ALPRAZOLAM [Concomitant]
  6. CALCIUM CARBONATE [Concomitant]
  7. MULTI-VITAMIN [Concomitant]
  8. TRINITRIN [Concomitant]
  9. DIOVAN [Concomitant]
  10. SIMVASTATIN [Concomitant]
  11. NEXIUM [Concomitant]

REACTIONS (5)
  - INTERVERTEBRAL DISC DEGENERATION [None]
  - NASOPHARYNGITIS [None]
  - PULMONARY THROMBOSIS [None]
  - SCOLIOSIS [None]
  - UNEQUAL LIMB LENGTH [None]
